FAERS Safety Report 7601874-3 (Version None)
Quarter: 2011Q3

REPORT INFORMATION
  Report Type: 
  Country: None (occurrence: None)
  Receive Date: 20110711
  Receipt Date: 20110524
  Transmission Date: 20111222
  Serious: No
  Sender: FDA-Public Use
  Company Number: US-BAYER-2011-046973

PATIENT
  Age: 19 Year
  Sex: Female
  Weight: 63 kg

DRUGS (4)
  1. ALEVE (CAPLET) [Suspect]
     Route: 048
  2. DRUGSTORE FLU MEDICINE [Concomitant]
     Indication: PYREXIA
     Dosage: UNK
     Dates: end: 20110523
  3. DRUGSTORE FLU MEDICINE [Concomitant]
     Indication: HEADACHE
  4. DRUGSTORE FLU MEDICINE [Concomitant]
     Indication: NASAL CONGESTION

REACTIONS (1)
  - ABDOMINAL PAIN UPPER [None]
